FAERS Safety Report 6801215-5 (Version None)
Quarter: 2010Q2

REPORT INFORMATION
  Report Type: 
  Country: None (occurrence: None)
  Receive Date: 20100629
  Receipt Date: 20100621
  Transmission Date: 20101027
  Serious: Yes (Hospitalization)
  Sender: FDA-Public Use
  Company Number: US-ASTRAZENECA-2010SE28826

PATIENT
  Age: 73 Year
  Sex: Female
  Weight: 75.3 kg

DRUGS (10)
  1. NEXIUM [Suspect]
     Indication: GASTROOESOPHAGEAL REFLUX DISEASE
     Route: 048
     Dates: start: 20080101
  2. PLAVIX [Concomitant]
  3. LEVOTHYROXINE SODIUM [Concomitant]
  4. EYEDROPS FOR GLAUCOMA [Concomitant]
  5. ARAVA [Concomitant]
  6. TOPROL-XL [Concomitant]
  7. PROVACOL [Concomitant]
  8. NASAL SPRAY [Concomitant]
  9. FERTAO [Concomitant]
  10. ASPIRIN [Concomitant]

REACTIONS (1)
  - TRANSIENT ISCHAEMIC ATTACK [None]
